FAERS Safety Report 23973457 (Version 2)
Quarter: 2024Q2

REPORT INFORMATION
  Report Type: Report from Study
  Country: DE (occurrence: DE)
  Receive Date: 20240613
  Receipt Date: 20240617
  Transmission Date: 20240715
  Serious: Yes (Death, Other)
  Sender: FDA-Public Use
  Company Number: DE-IPSEN Group, Research and Development-2024-11618

PATIENT
  Age: 73 Year
  Sex: Male
  Weight: 65 kg

DRUGS (2)
  1. DYSPORT [Suspect]
     Active Substance: ABOBOTULINUMTOXINA
     Indication: Muscle spasticity
     Dosage: FLEXOR CARPI RADIALIS (FCR)- 150-UNIT, FLEXOR CARPI ULNARIS (FCU)- 150 UNIT, FLEXOR DIGITORUM PROFUN
     Route: 030
     Dates: start: 20240214, end: 20240214
  2. DYSPORT [Suspect]
     Active Substance: ABOBOTULINUMTOXINA
     Dosage: FLEXOR CARPI RADIALIS (FCR)- 150 UNIT, FLEXOR CARPI ULNARIS (FCU)- 150 UNIT, FLEXOR DIGITORUM PROFUN
     Route: 030
     Dates: start: 20240506, end: 20240506

REACTIONS (3)
  - Death [Fatal]
  - Off label use [Unknown]
  - Off label use [Unknown]

NARRATIVE: CASE EVENT DATE: 20240214
